FAERS Safety Report 14526590 (Version 1)
Quarter: 2018Q1

REPORT INFORMATION
  Report Type: Spontaneous
  Country: TW (occurrence: TW)
  Receive Date: 20180213
  Receipt Date: 20180213
  Transmission Date: 20180509
  Serious: Yes (Hospitalization)
  Sender: FDA-Public Use
  Company Number: TW-ABBVIE-18K-153-2253215-00

PATIENT
  Age: 64 Year
  Sex: Male

DRUGS (1)
  1. ADALIMUMAB [Suspect]
     Active Substance: ADALIMUMAB
     Indication: RHEUMATOID ARTHRITIS
     Route: 058
     Dates: start: 20111005, end: 20180112

REACTIONS (7)
  - Dyspnoea exertional [Recovering/Resolving]
  - Arteriosclerosis coronary artery [Unknown]
  - Adverse drug reaction [Unknown]
  - Aortic arteriosclerosis [Unknown]
  - Myocardial stunning [Unknown]
  - Chest discomfort [Recovering/Resolving]
  - Aortic valve calcification [Unknown]

NARRATIVE: CASE EVENT DATE: 20180130
